FAERS Safety Report 8989896 (Version 1)
Quarter: 2012Q4

REPORT INFORMATION
  Report Type: 
  Country: JP (occurrence: JP)
  Receive Date: 20121228
  Receipt Date: 20121228
  Transmission Date: 20130627
  Serious: Yes (Hospitalization)
  Sender: FDA-Public Use
  Company Number: JP-GLAXOSMITHKLINE-B0842330A

PATIENT
  Sex: Female

DRUGS (1)
  1. TYKERB [Suspect]
     Indication: BREAST CANCER
     Dosage: 250MG Five times per day
     Route: 048
     Dates: start: 20100813

REACTIONS (3)
  - Interstitial lung disease [Not Recovered/Not Resolved]
  - Metastases to lung [Unknown]
  - Disease progression [Unknown]
